FAERS Safety Report 5916409-0 (Version None)
Quarter: 2008Q4

REPORT INFORMATION
  Report Type: 
  Country: None (occurrence: None)
  Receive Date: 20081013
  Receipt Date: 20080827
  Transmission Date: 20090506
  Serious: No
  Sender: FDA-Public Use
  Company Number: US-BAYER-200832808NA

PATIENT
  Sex: Female

DRUGS (2)
  1. OCELLA [Suspect]
     Indication: MENSTRUATION IRREGULAR
     Route: 048
     Dates: start: 20080701, end: 20080807
  2. ANTIBIOTICS NOS [Concomitant]
     Indication: DRUG USE FOR UNKNOWN INDICATION
     Dates: start: 20080701, end: 20080701

REACTIONS (4)
  - ACNE [None]
  - BREAST TENDERNESS [None]
  - HYPOMENORRHOEA [None]
  - RASH [None]
